FAERS Safety Report 7831868-4 (Version None)
Quarter: 2011Q4

REPORT INFORMATION
  Report Type: 
  Country: None (occurrence: None)
  Receive Date: 20111021
  Receipt Date: 20111011
  Transmission Date: 20120403
  Serious: Yes (Hospitalization)
  Sender: FDA-Public Use
  Company Number: US-GILEAD-2009-0020922

PATIENT

DRUGS (3)
  1. EMTRICITABINE/TENOFOVIR DISOPROXIL FUMARATE [Suspect]
     Dates: start: 20081031
  2. OMEPRAZOLE [Concomitant]
  3. DICLOFENAC [Concomitant]
     Route: 061

REACTIONS (2)
  - SYNCOPE [None]
  - HYPOGLYCAEMIA [None]
